FAERS Safety Report 22934061 (Version 2)
Quarter: 2023Q4

REPORT INFORMATION
  Report Type: Spontaneous
  Country: US (occurrence: US)
  Receive Date: 20230912
  Receipt Date: 20231016
  Transmission Date: 20240110
  Serious: No
  Sender: FDA-Public Use
  Company Number: US-BRISTOL-MYERS SQUIBB COMPANY-2023-128382

PATIENT
  Age: 81 Year
  Sex: Female

DRUGS (2)
  1. POMALYST [Suspect]
     Active Substance: POMALIDOMIDE
     Indication: Plasma cell myeloma
     Dosage: FREQUENCY: QD/DAILY FOR 21 DAYS ON AND 7 DAYS OFF
     Route: 048
     Dates: end: 20230907
  2. POMALYST [Suspect]
     Active Substance: POMALIDOMIDE
     Dosage: QD 21 ON 7 OFF
     Route: 048
     Dates: start: 20230923, end: 20231005

REACTIONS (3)
  - Palpitations [Unknown]
  - Oedema peripheral [Unknown]
  - Laboratory test abnormal [Unknown]
